FAERS Safety Report 4724659-4 (Version None)
Quarter: 2005Q3

REPORT INFORMATION
  Report Type: 
  Country: None (occurrence: None)
  Receive Date: 20050719
  Receipt Date: 20050719
  Transmission Date: 20060218
  Serious: Yes (Other)
  Sender: FDA-Public Use
  Company Number: None

PATIENT
  Age: 61 Year
  Sex: Female
  Weight: 68.0396 kg

DRUGS (2)
  1. FUROSEMIDE [Suspect]
     Indication: OEDEMA
     Dosage: TAKE 1 TABLET DAILY ORALLY
     Route: 048
     Dates: start: 20030101
  2. FUROSEMIDE [Suspect]
     Indication: OEDEMA
     Dosage: TAKE 1 TABLET DAILY ORALLY
     Route: 048
     Dates: start: 20050629

REACTIONS (2)
  - DRUG INEFFECTIVE [None]
  - PHARMACEUTICAL PRODUCT COMPLAINT [None]
